FAERS Safety Report 7564869-4 (Version None)
Quarter: 2011Q2

REPORT INFORMATION
  Report Type: 
  Country: None (occurrence: None)
  Receive Date: 20110622
  Receipt Date: 20110208
  Transmission Date: 20111010
  Serious: Yes (Death)
  Sender: FDA-Public Use
  Company Number: US-MYLANLABS-2011S1001435

PATIENT
  Age: 76 Year
  Sex: Male

DRUGS (2)
  1. MORPHINE [Concomitant]
     Indication: PAIN
     Route: 042
  2. CLOZAPINE [Suspect]
     Indication: PSYCHOTIC DISORDER
     Route: 048
     Dates: start: 20091001, end: 20101230

REACTIONS (2)
  - DIABETIC COMPLICATION [None]
  - SEPSIS [None]
